FAERS Safety Report 24454019 (Version 2)
Quarter: 2024Q4

REPORT INFORMATION
  Report Type: Spontaneous
  Country: CN (occurrence: CN)
  Receive Date: 20241017
  Receipt Date: 20241018
  Transmission Date: 20250115
  Serious: No
  Sender: ROCHE
  Company Number: CN-ROCHE-3469535

PATIENT
  Age: 12 Year
  Sex: Male
  Weight: 25.5 kg

DRUGS (1)
  1. MABTHERA [Suspect]
     Active Substance: RITUXIMAB
     Indication: Abdominal neoplasm
     Dosage: INJECTION
     Route: 041
     Dates: start: 20231109

REACTIONS (3)
  - Pyrexia [Recovering/Resolving]
  - Heart rate decreased [Recovering/Resolving]
  - Off label use [Unknown]

NARRATIVE: CASE EVENT DATE: 20231109
